FAERS Safety Report 17367603 (Version 1)
Quarter: 2020Q1

REPORT INFORMATION
  Report Type: Spontaneous
  Country: US (occurrence: US)
  Receive Date: 20200203
  Receipt Date: 20200203
  Transmission Date: 20200409
  Serious: Yes (Life-Threatening, Hospitalization, Disabling)
  Sender: FDA-Public Use
  Company Number: None

PATIENT
  Age: 24 Year
  Sex: Female
  Weight: 82 kg

DRUGS (5)
  1. AUGMENTIN [Concomitant]
     Active Substance: AMOXICILLIN\CLAVULANATE POTASSIUM
     Dates: start: 20191227, end: 20200105
  2. BENZONATATE 100 MG [Concomitant]
     Active Substance: BENZONATATE
     Dates: start: 20191227, end: 20200103
  3. ESTARYLLA [Suspect]
     Active Substance: ETHINYL ESTRADIOL\NORGESTIMATE
     Indication: CONTRACEPTION
     Route: 048
  4. PROAIR HFA [Concomitant]
     Active Substance: ALBUTEROL SULFATE
  5. PREDNISONE 10 MG [Concomitant]
     Active Substance: PREDNISONE
     Dates: start: 20191227, end: 20200107

REACTIONS (9)
  - Hypotension [None]
  - Unresponsive to stimuli [None]
  - Bronchitis [None]
  - Gait disturbance [None]
  - Cardiac disorder [None]
  - Cardiac arrest [None]
  - Pulse absent [None]
  - Blood glucose increased [None]
  - Pulmonary embolism [None]

NARRATIVE: CASE EVENT DATE: 20200108
